FAERS Safety Report 8580814-7 (Version None)
Quarter: 2012Q3

REPORT INFORMATION
  Report Type: 
  Country: None (occurrence: None)
  Receive Date: 20120809
  Receipt Date: 20120806
  Transmission Date: 20120928
  Serious: Yes (Other)
  Sender: FDA-Public Use
  Company Number: US-AMGEN-USASP2012049225

PATIENT
  Age: 48 Year
  Sex: Female

DRUGS (4)
  1. HUMIRA [Concomitant]
     Dosage: UNK
  2. SIMPONI [Concomitant]
     Dosage: UNK
  3. ENBREL [Suspect]
     Indication: RHEUMATOID ARTHRITIS
     Dosage: 50 MG, QWK
     Dates: start: 20110201
  4. TREXALL [Concomitant]
     Dosage: 1 ML, QWK
     Dates: start: 20120401

REACTIONS (13)
  - RHEUMATOID ARTHRITIS [None]
  - CLUMSINESS [None]
  - ANAPHYLACTIC REACTION [None]
  - PAIN [None]
  - FATIGUE [None]
  - SOMNOLENCE [None]
  - VOMITING [None]
  - C-REACTIVE PROTEIN INCREASED [None]
  - PRODUCTIVE COUGH [None]
  - NIGHTMARE [None]
  - RHINORRHOEA [None]
  - MIGRAINE [None]
  - TREMOR [None]
